FAERS Safety Report 19796185 (Version 4)
Quarter: 2021Q4

REPORT INFORMATION
  Report Type: Spontaneous
  Country: US (occurrence: US)
  Receive Date: 20210907
  Receipt Date: 20211220
  Transmission Date: 20220303
  Serious: Yes (Hospitalization, Other)
  Sender: FDA-Public Use
  Company Number: US-UNITED THERAPEUTICS-UNT-2021-016425

PATIENT
  Sex: Female
  Weight: 58.957 kg

DRUGS (7)
  1. REMODULIN [Suspect]
     Active Substance: TREPROSTINIL
     Indication: Pulmonary arterial hypertension
     Dosage: UNK, CONTINUING
     Route: 041
     Dates: start: 20210104
  2. REMODULIN [Suspect]
     Active Substance: TREPROSTINIL
     Dosage: 0.15 ?G/KG, CONTINUING
     Route: 041
     Dates: start: 2021
  3. REMODULIN [Suspect]
     Active Substance: TREPROSTINIL
     Dosage: UNK UNK, CONTINUING
     Route: 041
     Dates: start: 2021
  4. REMODULIN [Suspect]
     Active Substance: TREPROSTINIL
     Indication: Pulmonary arterial hypertension
     Dosage: UNK UNK, CONTINUING
     Route: 041
     Dates: start: 2021
  5. REMODULIN [Suspect]
     Active Substance: TREPROSTINIL
     Dosage: 0.13 ?G/KG, CONTINUING
     Route: 041
     Dates: start: 2021
  6. OPSUMIT [Concomitant]
     Active Substance: MACITENTAN
     Indication: Product used for unknown indication
     Dosage: UNK
     Route: 065
  7. ADEMPAS [Concomitant]
     Active Substance: RIOCIGUAT
     Indication: Product used for unknown indication
     Dosage: UNK
     Route: 065

REACTIONS (8)
  - Supraventricular tachycardia [Recovered/Resolved]
  - Platelet count decreased [Not Recovered/Not Resolved]
  - Dyspnoea [Not Recovered/Not Resolved]
  - Hypervolaemia [Recovered/Resolved]
  - Pulmonary arterial hypertension [Not Recovered/Not Resolved]
  - Tachycardia [Not Recovered/Not Resolved]
  - Lung disorder [Not Recovered/Not Resolved]
  - Respiration abnormal [Not Recovered/Not Resolved]

NARRATIVE: CASE EVENT DATE: 20210101
